FAERS Safety Report 6646419-X (Version None)
Quarter: 2010Q1

REPORT INFORMATION
  Report Type: 
  Country: None (occurrence: None)
  Receive Date: 20100322
  Receipt Date: 20100322
  Transmission Date: 20100710
  Serious: Yes (Life-Threatening)
  Sender: FDA-Public Use
  Company Number: None

PATIENT
  Age: 48 Year
  Sex: Female
  Weight: 87.9978 kg

DRUGS (2)
  1. INVEGA [Suspect]
     Indication: BIPOLAR DISORDER
     Dosage: 3 MG 1X DAILY ORAL
     Route: 048
  2. INVEGA [Suspect]
     Indication: THYROID FUNCTION TEST ABNORMAL
     Dosage: 3 MG 1X DAILY ORAL
     Route: 048

REACTIONS (17)
  - CHEST PAIN [None]
  - CONFUSIONAL STATE [None]
  - CONSTIPATION [None]
  - DISTURBANCE IN ATTENTION [None]
  - DIZZINESS POSTURAL [None]
  - DRY MOUTH [None]
  - DYSPNOEA [None]
  - LYMPH NODE PAIN [None]
  - MEMORY IMPAIRMENT [None]
  - MIGRAINE [None]
  - MUSCULAR WEAKNESS [None]
  - NIGHT SWEATS [None]
  - OROPHARYNGEAL PAIN [None]
  - SENSATION OF HEAVINESS [None]
  - SOMNOLENCE [None]
  - URINE OUTPUT DECREASED [None]
  - WEIGHT INCREASED [None]
